FAERS Safety Report 7894779-4 (Version None)
Quarter: 2011Q4

REPORT INFORMATION
  Report Type: 
  Country: None (occurrence: None)
  Receive Date: 20111106
  Receipt Date: 20110818
  Transmission Date: 20120403
  Serious: No
  Sender: FDA-Public Use
  Company Number: US-AMGEN-USASP2011042247

PATIENT
  Age: 41 Year
  Sex: Female
  Weight: 103.4 kg

DRUGS (2)
  1. ENBREL [Suspect]
     Indication: PRODUCT USED FOR UNKNOWN INDICATION
     Dosage: 50 MG, 2 TIMES/WK
  2. VITAMIN D [Concomitant]
     Dosage: 400 IU, UNK

REACTIONS (1)
  - INJECTION SITE PRURITUS [None]
